FAERS Safety Report 5097686-8 (Version None)
Quarter: 2006Q3

REPORT INFORMATION
  Report Type: 
  Country: None (occurrence: None)
  Receive Date: 20060901
  Receipt Date: 20060821
  Transmission Date: 20061208
  Serious: Yes (Death)
  Sender: FDA-Public Use
  Company Number: A-US2006-12926

PATIENT
  Age: 79 Year
  Sex: Female
  Weight: 62.5 kg

DRUGS (3)
  1. TRACLEER [Suspect]
     Indication: PULMONARY HYPERTENSION
     Dosage: SEE IMAGE, ORAL
     Route: 048
     Dates: start: 20040519, end: 20040618
  2. TRACLEER [Suspect]
     Indication: PULMONARY HYPERTENSION
     Dosage: SEE IMAGE, ORAL
     Route: 048
     Dates: start: 20040619, end: 20060616
  3. MORPHINE [Suspect]

REACTIONS (4)
  - FALL [None]
  - LUMBAR VERTEBRAL FRACTURE [None]
  - OSTEOPOROSIS [None]
  - RESPIRATORY ARREST [None]
